FAERS Safety Report 7136083-8 (Version None)
Quarter: 2010Q4

REPORT INFORMATION
  Report Type: 
  Country: None (occurrence: None)
  Receive Date: 20101204
  Receipt Date: 20101124
  Transmission Date: 20110411
  Serious: No
  Sender: FDA-Public Use
  Company Number: US-BAYER-2010-000004

PATIENT

DRUGS (3)
  1. ULTRAVIST 150 [Suspect]
     Dosage: 189 ML
     Route: 042
     Dates: start: 20101124, end: 20101124
  2. ULTRAVIST 150 [Suspect]
     Indication: UROGRAM
  3. ZOLOFT [Concomitant]

REACTIONS (1)
  - NAUSEA [None]
